FAERS Safety Report 7251693-5 (Version None)
Quarter: 2011Q1

REPORT INFORMATION
  Report Type: 
  Country: None (occurrence: None)
  Receive Date: 20110128
  Receipt Date: 20110119
  Transmission Date: 20110831
  Serious: Yes (Life-Threatening, Hospitalization, Other)
  Sender: FDA-Public Use
  Company Number: FR-ELI_LILLY_AND_COMPANY-FR201011006791

PATIENT
  Age: 81 Year
  Sex: Female
  Weight: 50 kg

DRUGS (11)
  1. RAMIPRIL [Concomitant]
  2. PLAVIX [Concomitant]
  3. CIFLOX [Concomitant]
     Indication: PYELONEPHRITIS
     Dosage: 500 MG, DAILY (1/D)
     Route: 048
     Dates: start: 20090425, end: 20090426
  4. BISOPROLOL [Concomitant]
  5. CYMBALTA [Suspect]
     Indication: ANXIETY
     Dosage: 30 MG, DAILY (1/D)
     Route: 048
     Dates: start: 20090425, end: 20090426
  6. KALEORID [Concomitant]
  7. KARDEGIC [Concomitant]
  8. AERIUS [Concomitant]
  9. CETORNAN [Concomitant]
  10. EQUANIL [Concomitant]
  11. DISCOTRINE [Concomitant]

REACTIONS (9)
  - FACTOR V DEFICIENCY [None]
  - HEPATITIS [None]
  - OFF LABEL USE [None]
  - VENTRICULAR ARRHYTHMIA [None]
  - DRUG INTERACTION [None]
  - HYPOTENSION [None]
  - HEPATIC FAILURE [None]
  - HAEMORRHAGE [None]
  - PROTHROMBIN TIME SHORTENED [None]
